FAERS Safety Report 5339291-1 (Version None)
Quarter: 2007Q2

REPORT INFORMATION
  Report Type: 
  Country: None (occurrence: None)
  Receive Date: 20070530
  Receipt Date: 20070529
  Transmission Date: 20071010
  Serious: Yes (Hospitalization, Disabling, Other)
  Sender: FDA-Public Use
  Company Number: US-MERCK-0703USA02886

PATIENT
  Age: 59 Year
  Sex: Female
  Weight: 94 kg

DRUGS (2)
  1. VYTORIN [Suspect]
     Indication: BLOOD CHOLESTEROL
     Route: 048
     Dates: start: 20060101, end: 20070201
  2. DIOVAN [Concomitant]
     Route: 065

REACTIONS (4)
  - DERMATOMYOSITIS [None]
  - GAIT DISTURBANCE [None]
  - RHABDOMYOLYSIS [None]
  - TEMPOROMANDIBULAR JOINT SYNDROME [None]
